FAERS Safety Report 10897006 (Version 1)
Quarter: 2015Q1

REPORT INFORMATION
  Report Type: Spontaneous
  Country: US (occurrence: US)
  Receive Date: 20150309
  Receipt Date: 20150309
  Transmission Date: 20150721
  Serious: No
  Sender: FDA-Public Use
  Company Number: US-ASTRAZENECA-2015SE02308

PATIENT
  Age: 70 Year
  Sex: Male
  Weight: 106.6 kg

DRUGS (1)
  1. BYDUREON [Suspect]
     Active Substance: EXENATIDE
     Indication: DIABETES MELLITUS
     Route: 058
     Dates: start: 20141208

REACTIONS (3)
  - Malaise [Unknown]
  - Burning sensation [Unknown]
  - Nausea [Unknown]

NARRATIVE: CASE EVENT DATE: 20141209
